FAERS Safety Report 5577431-X (Version None)
Quarter: 2007Q4

REPORT INFORMATION
  Report Type: 
  Country: None (occurrence: None)
  Receive Date: 20071228
  Receipt Date: 20071225
  Transmission Date: 20080405
  Serious: Yes (Other)
  Sender: FDA-Public Use
  Company Number: JP-PFIZER INC-2007107954

PATIENT
  Age: 70 Year
  Sex: Male

DRUGS (3)
  1. SOLU-CORTEF [Suspect]
     Indication: ISOLATED ADRENOCORTICOTROPIC HORMONE DEFICIENCY
     Dosage: DAILY DOSE:400MG
     Route: 042
  2. CORTRIL (TABS) [Suspect]
     Indication: ISOLATED ADRENOCORTICOTROPIC HORMONE DEFICIENCY
     Dosage: DAILY DOSE:30MG
     Route: 048
  3. HALOPERIDOL [Concomitant]
     Route: 030

REACTIONS (2)
  - DELIRIUM [None]
  - HYPOMANIA [None]
